FAERS Safety Report 9317466 (Version 1)
Quarter: 2013Q2

REPORT INFORMATION
  Report Type: Spontaneous
  Country: None (occurrence: US)
  Receive Date: 20130530
  Receipt Date: 20130530
  Transmission Date: 20140414
  Serious: No
  Sender: FDA-Public Use
  Company Number: US-NOVEN-12US004926

PATIENT
  Age: 19 Year
  Sex: Male

DRUGS (5)
  1. DAYTRANA [Suspect]
     Indication: ATTENTION DEFICIT/HYPERACTIVITY DISORDER
     Dosage: 20 MG, UNK
     Route: 062
     Dates: start: 200710
  2. DAYTRANA [Suspect]
     Dosage: 20 MG, UNK
     Route: 062
  3. MULTIVITAMIN                       /00097801/ [Concomitant]
     Route: 048
  4. CALCIUM [Concomitant]
     Route: 048
  5. RISPERDAL [Concomitant]
     Route: 048

REACTIONS (6)
  - Drug administered at inappropriate site [Not Recovered/Not Resolved]
  - Wrong technique in drug usage process [Not Recovered/Not Resolved]
  - Drug administration error [Not Recovered/Not Resolved]
  - Off label use [None]
  - Product quality issue [Not Recovered/Not Resolved]
  - No adverse event [None]
